FAERS Safety Report 11906083 (Version 2)
Quarter: 2016Q1

REPORT INFORMATION
  Report Type: Spontaneous
  Country: GB (occurrence: GB)
  Receive Date: 20160111
  Receipt Date: 20160112
  Transmission Date: 20160526
  Serious: Yes (Hospitalization)
  Sender: FDA-Public Use
  Company Number: GB-TEVA-623365ACC

PATIENT
  Age: 69 Year
  Sex: Female

DRUGS (15)
  1. ATENOLOL. [Concomitant]
     Active Substance: ATENOLOL
     Dosage: 100 MILLIGRAM DAILY;
  2. OMEPRAZOLE. [Interacting]
     Active Substance: OMEPRAZOLE
     Dosage: 40 MILLIGRAM DAILY;
     Dates: end: 20151218
  3. FELODIPINE. [Concomitant]
     Active Substance: FELODIPINE
     Dosage: 2.5 MILLIGRAM DAILY;
  4. FERROUS SULFATE [Concomitant]
     Active Substance: FERROUS SULFATE\FERROUS SULFATE, DRIED
     Dosage: 325 MILLIGRAM DAILY;
  5. GLICLAZIDE [Concomitant]
     Active Substance: GLICLAZIDE
     Dosage: 160 MILLIGRAM DAILY;
  6. SERTRALINE [Suspect]
     Active Substance: SERTRALINE HYDROCHLORIDE
     Indication: DEPRESSION
     Dosage: 50 MILLIGRAM DAILY;
     Route: 048
     Dates: start: 20151123, end: 20151218
  7. INDAPAMIDE. [Interacting]
     Active Substance: INDAPAMIDE
     Dosage: 1.5 MILLIGRAM DAILY;
     Dates: end: 20151218
  8. LOSARTAN. [Interacting]
     Active Substance: LOSARTAN
     Dosage: 100 MILLIGRAM DAILY;
     Dates: end: 20151218
  9. AMITRIPTYLINE [Concomitant]
     Active Substance: AMITRIPTYLINE
     Dosage: 20 MILLIGRAM DAILY; NOCTE
  10. BETAHISTINE [Concomitant]
     Active Substance: BETAHISTINE
     Dosage: 24 MILLIGRAM DAILY;
  11. LEVOTHYROXINE. [Concomitant]
     Active Substance: LEVOTHYROXINE
     Dosage: 100 MICROGRAM DAILY;
  12. ASPIRIN. [Concomitant]
     Active Substance: ASPIRIN
     Dosage: 75 MILLIGRAM DAILY;
  13. ADCAL-D3 [Concomitant]
     Active Substance: CALCIUM CARBONATE\CHOLECALCIFEROL
     Dosage: 2 DOSAGE FORMS DAILY;
  14. METFORMIN [Concomitant]
     Active Substance: METFORMIN HYDROCHLORIDE
     Dosage: 2 GRAM DAILY;
  15. ROSUVASTATIN [Concomitant]
     Active Substance: ROSUVASTATIN
     Dosage: 10 MILLIGRAM DAILY; NOCTE

REACTIONS (4)
  - Hyponatraemia [Recovering/Resolving]
  - Confusional state [Unknown]
  - Drug interaction [Unknown]
  - Malaise [Unknown]

NARRATIVE: CASE EVENT DATE: 20151217
